FAERS Safety Report 4570336-2 (Version None)
Quarter: 2005Q1

REPORT INFORMATION
  Report Type: 
  Country: None (occurrence: None)
  Receive Date: 20050204
  Receipt Date: 20050126
  Transmission Date: 20050727
  Serious: Yes (Hospitalization)
  Sender: FDA-Public Use
  Company Number: US-JNJFOC-20050107054

PATIENT
  Age: 19 Year
  Sex: Female

DRUGS (3)
  1. IBUPROFEN [Suspect]
     Indication: SUICIDE ATTEMPT
     Dosage: APPROXIMATELY 30 800 MG TABLETS (24 GRAMS)
     Route: 049
  2. BARBITUATES [Suspect]
     Indication: SUICIDE ATTEMPT
     Route: 049
  3. ALCOHOL [Suspect]
     Indication: SUICIDE ATTEMPT
     Route: 049

REACTIONS (3)
  - INTENTIONAL MISUSE [None]
  - LETHARGY [None]
  - VOMITING [None]
